FAERS Safety Report 16775137 (Version 1)
Quarter: 2019Q3

REPORT INFORMATION
  Report Type: Spontaneous
  Country: US (occurrence: US)
  Receive Date: 20190715
  Receipt Date: 20190715
  Transmission Date: 20191005
  Serious: Yes (Hospitalization)
  Sender: FDA-Public Use
  Company Number: None

PATIENT
  Age: 28 Year
  Sex: Male

DRUGS (1)
  1. VENLAFAXINE [Suspect]
     Active Substance: VENLAFAXINE HYDROCHLORIDE
     Route: 048
     Dates: start: 20190130, end: 20190207

REACTIONS (5)
  - Anxiety [None]
  - Intentional self-injury [None]
  - Refusal of treatment by patient [None]
  - Intentional overdose [None]
  - Agitation [None]

NARRATIVE: CASE EVENT DATE: 20190206
